FAERS Safety Report 17205004 (Version 1)
Quarter: 2019Q4

REPORT INFORMATION
  Report Type: Spontaneous
  Country: US (occurrence: US)
  Receive Date: 20191227
  Receipt Date: 20191227
  Transmission Date: 20200122
  Serious: No
  Sender: FDA-Public Use
  Company Number: NVSC2019US080429

PATIENT
  Age: 20 Year
  Sex: Male
  Weight: 97 kg

DRUGS (1)
  1. KYMRIAH [Suspect]
     Active Substance: TISAGENLECLEUCEL
     Indication: ACUTE LYMPHOCYTIC LEUKAEMIA
     Dosage: 1 DF, ONCE/SINGLE
     Route: 042
     Dates: start: 20190923, end: 20190923

REACTIONS (1)
  - Blood count abnormal [Recovered/Resolved]

NARRATIVE: CASE EVENT DATE: 20191204
